FAERS Safety Report 8173028-6 (Version None)
Quarter: 2012Q1

REPORT INFORMATION
  Report Type: 
  Country: None (occurrence: None)
  Receive Date: 20120229
  Receipt Date: 20120220
  Transmission Date: 20120608
  Serious: No
  Sender: FDA-Public Use
  Company Number: US-JNJFOC-20120210835

PATIENT
  Sex: Male
  Weight: 72.58 kg

DRUGS (4)
  1. FENTANYL-100 [Suspect]
     Indication: BACK PAIN
     Route: 062
     Dates: start: 20090101
  2. ZANAFLEX [Concomitant]
     Indication: PAIN
     Route: 048
     Dates: start: 20020101
  3. MELOXICAM [Concomitant]
     Indication: PAIN
     Route: 048
     Dates: start: 20010101
  4. FENTANYL-100 [Suspect]
     Route: 062
     Dates: start: 19850101, end: 20090101

REACTIONS (2)
  - FURUNCLE [None]
  - WRONG TECHNIQUE IN DRUG USAGE PROCESS [None]
